FAERS Safety Report 12077020 (Version 1)
Quarter: 2016Q1

REPORT INFORMATION
  Report Type: Spontaneous
  Country: IT (occurrence: IT)
  Receive Date: 20160215
  Receipt Date: 20160215
  Transmission Date: 20160526
  Serious: Yes (Disabling, Other)
  Sender: FDA-Public Use
  Company Number: IT-BRISTOL-MYERS SQUIBB COMPANY-BMS-2016-009450

PATIENT
  Age: 80 Year
  Sex: Female

DRUGS (2)
  1. ELIQUIS [Suspect]
     Active Substance: APIXABAN
     Indication: CEREBROVASCULAR ACCIDENT PROPHYLAXIS
     Dosage: 5 MG, BID
     Route: 048
     Dates: start: 20151105
  2. LASIX [Concomitant]
     Active Substance: FUROSEMIDE
     Indication: PRODUCT USED FOR UNKNOWN INDICATION
     Route: 065

REACTIONS (10)
  - Visual acuity reduced [Unknown]
  - Fatigue [Unknown]
  - Pneumonia [Recovering/Resolving]
  - Mouth swelling [Unknown]
  - Nausea [Unknown]
  - Mastication disorder [Unknown]
  - Tooth disorder [Unknown]
  - Lip swelling [Unknown]
  - Headache [Unknown]
  - Dysphagia [Unknown]

NARRATIVE: CASE EVENT DATE: 20151120
